FAERS Safety Report 4415380-0 (Version None)
Quarter: 2004Q2

REPORT INFORMATION
  Report Type: 
  Country: None (occurrence: None)
  Receive Date: 20040630
  Receipt Date: 20030810
  Transmission Date: 20050107
  Serious: Yes (Other)
  Sender: FDA-Public Use
  Company Number: 2003034023

PATIENT
  Sex: Male
  Weight: 106.5953 kg

DRUGS (2)
  1. ZOLOFT [Suspect]
     Indication: AGORAPHOBIA
     Dosage: 50 MG (DAILY), ORAL
     Route: 048
  2. CLONAZEPAM [Concomitant]

REACTIONS (3)
  - DIZZINESS [None]
  - STRESS SYMPTOMS [None]
  - SYNCOPE [None]
